FAERS Safety Report 19305653 (Version 2)
Quarter: 2021Q3

REPORT INFORMATION
  Report Type: Spontaneous
  Country: US (occurrence: US)
  Receive Date: 20210526
  Receipt Date: 20210914
  Transmission Date: 20211014
  Serious: Yes (Hospitalization, Other)
  Sender: FDA-Public Use
  Company Number: US-CIPLA LTD.-2021US03626

PATIENT

DRUGS (2)
  1. WARFARIN [Suspect]
     Active Substance: WARFARIN
     Indication: ANTICOAGULANT THERAPY
     Dosage: UNK
     Route: 065
  2. WARFARIN [Suspect]
     Active Substance: WARFARIN
     Dosage: UNK, PROGRESSIVE ESCALATION OF WARFARIN
     Route: 065

REACTIONS (7)
  - Anticoagulation drug level below therapeutic [Unknown]
  - Ascites [Unknown]
  - Prosthetic cardiac valve thrombosis [Recovered/Resolved]
  - Venous hypertension [Unknown]
  - Pulmonary venous hypertension [Unknown]
  - Anticoagulation drug level above therapeutic [Unknown]
  - Pleural effusion [Unknown]
